FAERS Safety Report 4633054-8 (Version None)
Quarter: 2005Q2

REPORT INFORMATION
  Report Type: 
  Country: None (occurrence: None)
  Receive Date: 20050411
  Receipt Date: 20050411
  Transmission Date: 20051028
  Serious: Yes (Hospitalization)
  Sender: FDA-Public Use
  Company Number: None

PATIENT
  Sex: Female
  Weight: 133.6 kg

DRUGS (2)
  1. PACLITAXEL [Suspect]
     Indication: PERITONEAL CARCINOMA
     Dosage: 337MG  Q 21 DAYS  INTRAVENOU
     Route: 042
     Dates: start: 20050321, end: 20050321
  2. CARBOPLATIN [Suspect]
     Indication: PERITONEAL CARCINOMA
     Dosage: 630 MG  Q 21 DAYS  INTRAVENOU
     Route: 042
     Dates: start: 20050321, end: 20050321

REACTIONS (1)
  - DEEP VEIN THROMBOSIS [None]
